FAERS Safety Report 6245023-5 (Version None)
Quarter: 2009Q2

REPORT INFORMATION
  Report Type: 
  Country: None (occurrence: None)
  Receive Date: 20090619
  Receipt Date: 20090120
  Transmission Date: 20091009
  Serious: Yes (Hospitalization)
  Sender: FDA-Public Use
  Company Number: 2009PL000094

PATIENT
  Age: 39 Year
  Sex: Male
  Weight: 106.7 kg

DRUGS (4)
  1. AZATHIOPRINE [Suspect]
     Indication: CROHN'S DISEASE
     Dosage: 280 MG;QD;PO
     Route: 048
     Dates: start: 20070626, end: 20070707
  2. PLACEBO (PLACEBO) LYOPHILIZED POWDER (NO PREF. NAME) [Suspect]
     Indication: CROHN'S DISEASE
     Dosage: 533.5 MG;QD;IV
     Route: 042
     Dates: start: 20070626, end: 20070626
  3. AMINOSALICYLIC ACID [Concomitant]
  4. CLEMASTINE FUMARATE [Concomitant]

REACTIONS (1)
  - HEPATITIS [None]
